FAERS Safety Report 6768373-2 (Version None)
Quarter: 2010Q2

REPORT INFORMATION
  Report Type: 
  Country: None (occurrence: None)
  Receive Date: 20100614
  Receipt Date: 20100315
  Transmission Date: 20101027
  Serious: Yes (Death)
  Sender: FDA-Public Use
  Company Number: PHHY2010KR37794

PATIENT
  Sex: Female

DRUGS (6)
  1. ZOLEDRONATE T29581+SOLINF [Suspect]
     Indication: MULTIPLE MYELOMA
     Dosage: 4 MG
     Route: 042
     Dates: start: 20040617
  2. ZOLEDRONATE T29581+SOLINF [Suspect]
     Indication: METASTASES TO BONE
  3. MORPHINE [Concomitant]
     Indication: PAIN
     Dosage: UNK
     Route: 042
     Dates: start: 20040617, end: 20040618
  4. OXYCONTIN [Concomitant]
     Indication: PAIN
     Dosage: UNK
     Route: 048
     Dates: start: 20040617, end: 20040618
  5. ULTRACET [Concomitant]
     Indication: PAIN
     Dosage: UNK
     Route: 048
     Dates: start: 20040617, end: 20040620
  6. TEPRENONE [Concomitant]
     Indication: PAIN
     Dosage: UNK
     Dates: start: 20040617, end: 20040620

REACTIONS (1)
  - DEATH [None]
